FAERS Safety Report 5361253-9 (Version None)
Quarter: 2007Q2

REPORT INFORMATION
  Report Type: 
  Country: None (occurrence: None)
  Receive Date: 20070618
  Receipt Date: 20070608
  Transmission Date: 20071010
  Serious: Yes (Hospitalization, Other)
  Sender: FDA-Public Use
  Company Number: AU-GENENTECH-242878

PATIENT
  Age: 55 Year
  Sex: Male

DRUGS (2)
  1. RITUXIMAB [Suspect]
     Indication: VASCULITIS
  2. CYCLOPHOSPHAMIDE [Suspect]
     Indication: VASCULITIS

REACTIONS (1)
  - CHEST PAIN [None]
